FAERS Safety Report 5984225-X (Version None)
Quarter: 2008Q4

REPORT INFORMATION
  Report Type: 
  Country: None (occurrence: None)
  Receive Date: 20081208
  Receipt Date: 20081122
  Transmission Date: 20090506
  Serious: Yes (Hospitalization)
  Sender: FDA-Public Use
  Company Number: JP-ASTRAZENECA-2008SE04376

PATIENT
  Age: 76 Year
  Sex: Female

DRUGS (15)
  1. BLOPRESS [Suspect]
     Indication: CARDIAC FAILURE CHRONIC
     Route: 048
     Dates: start: 20070525
  2. BENET TABLETS 2.5MG [Concomitant]
     Indication: OSTEOPOROSIS
     Route: 048
  3. LANSOPRAZOLE [Concomitant]
     Indication: REFLUX OESOPHAGITIS
     Route: 048
  4. HALFDIGOXIN [Concomitant]
     Indication: CARDIAC FAILURE CHRONIC
     Route: 048
  5. WARFARIN POTASSIUM [Concomitant]
     Indication: CARDIAC FAILURE CHRONIC
     Route: 048
     Dates: end: 20070710
  6. WARFARIN POTASSIUM [Concomitant]
     Route: 048
     Dates: start: 20070711, end: 20070719
  7. WARFARIN POTASSIUM [Concomitant]
     Route: 048
     Dates: start: 20070720, end: 20070816
  8. WARFARIN POTASSIUM [Concomitant]
     Route: 048
     Dates: start: 20070817
  9. AMLODIN [Concomitant]
     Indication: CARDIAC FAILURE CHRONIC
     Route: 048
  10. FERROMIA [Concomitant]
     Indication: IRON DEFICIENCY ANAEMIA
     Route: 048
  11. ALFAROL [Concomitant]
     Indication: OSTEOPOROSIS
     Route: 048
  12. ASPARA-CA [Concomitant]
     Indication: OSTEOPOROSIS
     Route: 048
  13. LOXONIN [Concomitant]
     Indication: RHEUMATOID ARTHRITIS
     Route: 048
  14. PREDNISOLONE [Concomitant]
     Indication: RHEUMATOID ARTHRITIS
     Route: 048
  15. RIMATIL [Concomitant]
     Indication: RHEUMATOID ARTHRITIS
     Route: 048

REACTIONS (2)
  - ANAEMIA [None]
  - GASTROINTESTINAL HAEMORRHAGE [None]
